FAERS Safety Report 9386458 (Version 5)
Quarter: 2014Q1

REPORT INFORMATION
  Report Type: Spontaneous
  Country: US (occurrence: US)
  Receive Date: 20130708
  Receipt Date: 20140124
  Transmission Date: 20141002
  Serious: Yes (Hospitalization)
  Sender: FDA-Public Use
  Company Number: US-BIOGENIDEC-2013BI058237

PATIENT
  Age: 71 Year
  Sex: Female

DRUGS (4)
  1. TECFIDERA [Suspect]
     Indication: MULTIPLE SCLEROSIS
     Route: 048
     Dates: start: 20130521, end: 20130620
  2. TECFIDERA [Suspect]
     Indication: MULTIPLE SCLEROSIS
     Route: 048
     Dates: start: 20130528, end: 201306
  3. AVONEX [Concomitant]
     Indication: MULTIPLE SCLEROSIS
     Route: 030
     Dates: start: 20010924, end: 20130315
  4. AVONEX [Concomitant]
     Indication: MULTIPLE SCLEROSIS
     Route: 030
     Dates: start: 20130724

REACTIONS (24)
  - Gastrointestinal disorder [Unknown]
  - Flushing [Recovered/Resolved]
  - Asthenia [Recovered/Resolved]
  - Vomiting [Recovered/Resolved]
  - Cystitis [Recovered/Resolved]
  - Syncope [Recovered/Resolved]
  - Nausea [Recovered/Resolved]
  - Musculoskeletal disorder [Unknown]
  - Muscular weakness [Unknown]
  - Dysstasia [Recovered/Resolved]
  - Dehydration [Recovered/Resolved]
  - Neurological symptom [Recovered/Resolved]
  - Rash macular [Recovered/Resolved]
  - Nerve injury [Recovered/Resolved]
  - General physical health deterioration [Recovered/Resolved]
  - Pallor [Recovered/Resolved]
  - Fatigue [Recovered/Resolved]
  - Underdose [Recovered/Resolved]
  - Drug intolerance [Unknown]
  - Urinary tract infection [Unknown]
  - General symptom [Recovered/Resolved]
  - Feeling abnormal [Recovered/Resolved]
  - Abasia [Recovered/Resolved]
  - Cold sweat [Recovered/Resolved]
